FAERS Safety Report 8313968-8 (Version None)
Quarter: 2012Q2

REPORT INFORMATION
  Report Type: 
  Country: None (occurrence: None)
  Receive Date: 20120426
  Receipt Date: 20120420
  Transmission Date: 20120825
  Serious: Yes (Hospitalization)
  Sender: FDA-Public Use
  Company Number: US-BAYER-2012-018829

PATIENT
  Age: 32 Year
  Sex: Female
  Weight: 52.154 kg

DRUGS (10)
  1. YASMIN [Suspect]
     Dosage: UNK
     Dates: start: 20010101, end: 20060101
  2. YAZ [Suspect]
     Dosage: UNK
     Dates: start: 20090101, end: 20100101
  3. MOTRIN [Concomitant]
  4. DARVOCET [Concomitant]
     Indication: PAIN
     Dosage: UNK
     Dates: start: 20100430
  5. METOCLOPRAMIDE [Concomitant]
     Dosage: 5 MG, UNK
     Dates: start: 20090328
  6. HYDROCODONE BITARTRATE AND ACETAMINOPHEN [Concomitant]
     Dosage: UNK
     Dates: start: 20100429
  7. LYRICA [Concomitant]
     Dosage: 75 MG, UNK
     Dates: start: 20100521
  8. BUTALBITAL ACETAMINOPHEN AND CAFFEINE [Concomitant]
     Indication: MIGRAINE
     Dosage: UNK
     Dates: start: 20100329
  9. PERCOCET [Concomitant]
     Dosage: UNK
     Dates: start: 20100429, end: 20100521
  10. NAPROXEN SODIUM AND PSEUDOEPHEDRINE HYDROCHLORIDE [Concomitant]
     Dosage: 500 MG, UNK
     Dates: start: 20100429

REACTIONS (5)
  - PULMONARY EMBOLISM [None]
  - OEDEMA PERIPHERAL [None]
  - PAIN [None]
  - DEEP VEIN THROMBOSIS [None]
  - SKIN DISCOLOURATION [None]
